FAERS Safety Report 9988086 (Version 2)
Quarter: 2014Q2

REPORT INFORMATION
  Report Type: Report from Study
  Country: BR (occurrence: BR)
  Receive Date: 20140308
  Receipt Date: 20140529
  Transmission Date: 20141212
  Serious: Yes (Hospitalization)
  Sender: FDA-Public Use
  Company Number: BR-ROCHE-1358828

PATIENT
  Sex: Female
  Weight: 58 kg

DRUGS (9)
  1. ACTEMRA [Suspect]
     Indication: RHEUMATOID ARTHRITIS
     Dosage: LATEST DOSE : 28/OCT/2013
     Route: 042
     Dates: start: 20130926, end: 20131028
  2. DICLOFENAC [Concomitant]
  3. ARADOIS H [Concomitant]
  4. GLIFAGE [Concomitant]
     Route: 065
  5. FLUOXETINE [Concomitant]
  6. FOLIC ACID [Concomitant]
  7. METHOTREXATE [Concomitant]
     Route: 065
  8. PROFENID [Concomitant]
  9. DEPURA [Concomitant]

REACTIONS (2)
  - Arthropathy [Unknown]
  - Asthma [Recovered/Resolved]
